FAERS Safety Report 5244409-5 (Version None)
Quarter: 2007Q1

REPORT INFORMATION
  Report Type: 
  Country: None (occurrence: None)
  Receive Date: 20070222
  Receipt Date: 20070212
  Transmission Date: 20070707
  Serious: Yes (Other)
  Sender: FDA-Public Use
  Company Number: US-PFIZER INC-2007001848

PATIENT
  Sex: Female
  Weight: 75 kg

DRUGS (9)
  1. LIPITOR [Suspect]
     Indication: BLOOD CHOLESTEROL INCREASED
     Dates: start: 20050101, end: 20060101
  2. LIPITOR [Suspect]
     Indication: HYPERLIPIDAEMIA
  3. LIPITOR [Suspect]
     Indication: SMOKER
  4. LIPITOR [Suspect]
     Indication: ILL-DEFINED DISORDER
  5. LOPRESSOR [Concomitant]
  6. TOPROL-XL [Concomitant]
     Dates: start: 20060701
  7. ACIPHEX [Concomitant]
  8. BENTYL [Concomitant]
  9. FLONASE [Concomitant]

REACTIONS (8)
  - CONFUSIONAL STATE [None]
  - MALAISE [None]
  - MUSCLE SPASMS [None]
  - MUSCULOSKELETAL DISCOMFORT [None]
  - MYALGIA [None]
  - NONSPECIFIC REACTION [None]
  - SLUGGISHNESS [None]
  - THINKING ABNORMAL [None]
